FAERS Safety Report 24526866 (Version 1)
Quarter: 2024Q4

REPORT INFORMATION
  Report Type: Report from Study
  Country: US (occurrence: US)
  Receive Date: 20241021
  Receipt Date: 20241021
  Transmission Date: 20250115
  Serious: No
  Sender: ROCHE
  Company Number: US-ROCHE-3564438

PATIENT
  Age: 65 Year
  Sex: Male

DRUGS (11)
  1. ZELBORAF [Suspect]
     Active Substance: VEMURAFENIB
     Indication: Metabolic disorder
     Dosage: ONGOING- YES
     Route: 048
  2. FUROSEMIDE [Concomitant]
     Active Substance: FUROSEMIDE
  3. PROCHLORPERAZINE [Concomitant]
     Active Substance: PROCHLORPERAZINE
  4. COLCHICINE [Concomitant]
     Active Substance: COLCHICINE
  5. AMLODIPINE [Concomitant]
     Active Substance: AMLODIPINE BESYLATE
  6. ASPIRIN [Concomitant]
     Active Substance: ASPIRIN
  7. LEVETIRACETAM [Concomitant]
     Active Substance: LEVETIRACETAM
  8. CHOLECALCIFEROL [Concomitant]
     Active Substance: CHOLECALCIFEROL
  9. CYANOCOBALAMIN [Concomitant]
     Active Substance: CYANOCOBALAMIN
  10. FERROUS SULFATE [Concomitant]
     Active Substance: FERROUS SULFATE
  11. DESMOPRESSIN [Concomitant]
     Active Substance: DESMOPRESSIN

REACTIONS (2)
  - Off label use [Unknown]
  - No adverse event [Unknown]
